FAERS Safety Report 8470838-2 (Version None)
Quarter: 2012Q2

REPORT INFORMATION
  Report Type: 
  Country: None (occurrence: None)
  Receive Date: 20120627
  Receipt Date: 20120618
  Transmission Date: 20120825
  Serious: Yes (Other)
  Sender: FDA-Public Use
  Company Number: CA-ASTELLAS-2012US005560

PATIENT
  Age: 31 Year
  Sex: Female

DRUGS (1)
  1. PROTOPIC [Suspect]
     Indication: ECZEMA
     Dosage: UNK
     Route: 061
     Dates: start: 20110101

REACTIONS (2)
  - PARALYSIS [None]
  - SENSORY LOSS [None]
